FAERS Safety Report 8788428 (Version 2)
Quarter: 2012Q4

REPORT INFORMATION
  Report Type: 
  Country: US (occurrence: US)
  Receive Date: 20120914
  Receipt Date: 20121008
  Transmission Date: 20130627
  Serious: Yes (Other)
  Sender: FDA-Public Use
  Company Number: US-VERTEX PHARMACEUTICAL INC.-AE-2012-011862

PATIENT
  Age: 56 Year
  Sex: Male
  Weight: 109 kg

DRUGS (8)
  1. VX-950 [Suspect]
     Indication: HEPATITIS C
     Dosage: 750 mg, tid
     Route: 048
     Dates: end: 20120920
  2. PEGASYS [Suspect]
     Indication: HEPATITIS C
     Dosage: 180 ?g, UNK
     Dates: end: 20120920
  3. RIBAVIRIN [Suspect]
     Indication: HEPATITIS C
     Dosage: 200 mg, UNK
     Dates: end: 20120920
  4. OMEPRAZOLE [Concomitant]
     Dosage: 20 mg, UNK
  5. CELEBREX [Concomitant]
     Dosage: 200 mg, UNK
  6. AMOXICILLIN [Concomitant]
     Dosage: 250 mg, UNK
  7. OTIC CARE [Concomitant]
  8. TACLONEX [Concomitant]

REACTIONS (3)
  - Mastoiditis [Unknown]
  - Ear infection [Unknown]
  - Fatigue [Unknown]
